FAERS Safety Report 7464247-2 (Version None)
Quarter: 2011Q2

REPORT INFORMATION
  Report Type: 
  Country: None (occurrence: None)
  Receive Date: 20110506
  Receipt Date: 20101021
  Transmission Date: 20111010
  Serious: No
  Sender: FDA-Public Use
  Company Number: US-AMGEN-TCS437839

PATIENT
  Age: 74 Year
  Sex: Female

DRUGS (2)
  1. ENBREL [Suspect]
     Dosage: 50 MG, 2 TIMES/WK
     Route: 058
     Dates: start: 20100817
  2. ENBREL [Suspect]
     Indication: PSORIASIS
     Dosage: 50 MG, 2 TIMES/WK
     Route: 058
     Dates: start: 20100816

REACTIONS (9)
  - SKIN WARM [None]
  - INJECTION SITE PRURITUS [None]
  - INJECTION SITE SWELLING [None]
  - LOCAL SWELLING [None]
  - RASH [None]
  - ERYTHEMA [None]
  - INJECTION SITE URTICARIA [None]
  - INJECTION SITE ERYTHEMA [None]
  - PRURITUS [None]
